FAERS Safety Report 5008386-4 (Version None)
Quarter: 2006Q2

REPORT INFORMATION
  Report Type: 
  Country: None (occurrence: None)
  Receive Date: 20060523
  Receipt Date: 20051220
  Transmission Date: 20061013
  Serious: Yes (Other)
  Sender: FDA-Public Use
  Company Number: PHMT2005CA00850

PATIENT
  Age: 63 Year
  Sex: Female
  Weight: 65.759 kg

DRUGS (1)
  1. ZELNORM [Suspect]
     Dosage: 6 MG, BID
     Dates: start: 20051031

REACTIONS (11)
  - ABDOMINAL PAIN [None]
  - ANXIETY [None]
  - CRYING [None]
  - DEPRESSION [None]
  - DISTURBANCE IN ATTENTION [None]
  - FATIGUE [None]
  - INSOMNIA [None]
  - MOOD ALTERED [None]
  - NAUSEA [None]
  - PARANOIA [None]
  - SUICIDAL IDEATION [None]
